FAERS Safety Report 15891706 (Version 2)
Quarter: 2019Q1

REPORT INFORMATION
  Report Type: Spontaneous
  Country: US (occurrence: US)
  Receive Date: 20190130
  Receipt Date: 20190319
  Transmission Date: 20190417
  Serious: Yes (Death, Other)
  Sender: FDA-Public Use
  Company Number: US-PFIZER INC-2019044047

PATIENT
  Age: 73 Year
  Sex: Female

DRUGS (20)
  1. ZOSYN [Concomitant]
     Active Substance: PIPERACILLIN SODIUM\TAZOBACTAM SODIUM
     Dosage: 3375 MG, SINGLE (PIPERACILLIN TAZOBACTAM (ZOSYN) 3,375 MG IN SODIUM CHLORIDE 0.9 % 100 ML IVPB )
     Route: 042
     Dates: start: 20181225, end: 20181225
  2. NAMENDA [Concomitant]
     Active Substance: MEMANTINE HYDROCHLORIDE
     Dosage: 10 MG, 2X/DAY
     Route: 048
  3. OMEGA-3 FISH OIL [Concomitant]
     Active Substance: FISH OIL\OMEGA-3 FATTY ACIDS
     Dosage: UNK, DAILY  [340-1,000 MG CAPSULE]
     Route: 048
  4. B6 [Concomitant]
     Active Substance: PYRIDOXINE HYDROCHLORIDE
     Dosage: 100 MG, DAILY
     Route: 048
  5. CALCIUM GLUCONATE. [Concomitant]
     Active Substance: CALCIUM GLUCONATE
     Dosage: 1 G, SINGLE (CALCIUM GLUCONATE 1 G IN SODIUM CHLORIDE 0.9 % 50 ML )
     Route: 042
     Dates: start: 20181225, end: 20181225
  6. ASPIRIN 81 [Concomitant]
     Active Substance: ASPIRIN
     Dosage: 81 MG, DAILY
  7. TOPROL XL [Concomitant]
     Active Substance: METOPROLOL SUCCINATE
     Dosage: 50 MG, 1X/DAY
     Route: 048
  8. VANCOCIN [Concomitant]
     Active Substance: VANCOMYCIN HYDROCHLORIDE
     Dosage: 15 MG/KG, SINGLE (VANCOMYCIN (VANCOCIN) 750 MG IN SODIUM CHLORIDE 0.9 % 250 ML IVPB)
     Route: 042
  9. ZYLOPRIM [Concomitant]
     Active Substance: ALLOPURINOL
     Dosage: 150 MG, DAILY (TAKE 1 TABLET (300 MG TOTAL) BY MOUTH DAILY. (PATIENT TAKING DIFFERENTLY: TAKE 150 M)
     Route: 048
  10. LIPITOR [Concomitant]
     Active Substance: ATORVASTATIN CALCIUM
     Dosage: 20 MG, DAILY
     Route: 048
  11. VITAMIN E-400 [Concomitant]
     Dosage: 800 MG, DAILY
     Route: 048
  12. LEVAQUIN [Concomitant]
     Active Substance: LEVOFLOXACIN
     Dosage: 750 MG, SINGLE
     Route: 042
  13. FOSAMAX [Concomitant]
     Active Substance: ALENDRONATE SODIUM
     Dosage: 70 MG, MONTHLY (TAKE 70 MG BY MOUTH EVERY 30 (THIRTY) DAYS. TAKE IN THE MORNING WITH A FULL GLASS O)
     Route: 048
  14. IBRANCE [Suspect]
     Active Substance: PALBOCICLIB
     Indication: BREAST CANCER METASTATIC
     Dosage: 100 MG, UNK
     Dates: start: 20180619, end: 20181004
  15. FASLODEX [Suspect]
     Active Substance: FULVESTRANT
     Indication: BREAST CANCER METASTATIC
     Dosage: UNK
  16. CALTRATE 600+D [Concomitant]
     Dosage: UNK, DAILY
     Route: 048
  17. DECADRON [Concomitant]
     Active Substance: DEXAMETHASONE
     Dosage: 2 MG, 2X/DAY (TAKE 2 MG BY MOUTH 2 (TWO) TIMES A DAY WITH MEALS)
     Route: 048
  18. KLOR-CON M20 [Concomitant]
     Active Substance: POTASSIUM CHLORIDE
     Dosage: 20 MEQ, DAILY
     Route: 048
  19. SODIUM CHLORIDE. [Concomitant]
     Active Substance: SODIUM CHLORIDE
     Dosage: UNK UNK, SINGLE (DOSE: 30 ML/KG; ROUTE: INTRAVENOUS; FREQUENCY: ONCE/ LAST RATE: 1,584 ML/HR AT 25D)
     Route: 042
     Dates: start: 20181225, end: 20181225
  20. CENTRUM [Concomitant]
     Active Substance: VITAMINS
     Dosage: UNK, DAILY  [18-400 MG-MCG]
     Route: 048

REACTIONS (2)
  - Leukopenia [Unknown]
  - Neoplasm progression [Fatal]
